FAERS Safety Report 10577150 (Version 3)
Quarter: 2014Q4

REPORT INFORMATION
  Report Type: Spontaneous
  Country: IT (occurrence: IT)
  Receive Date: 20141111
  Receipt Date: 20141114
  Transmission Date: 20150529
  Serious: No
  Sender: FDA-Public Use
  Company Number: IT-PFIZER INC-2014206126

PATIENT
  Age: 21 Year
  Sex: Female

DRUGS (1)
  1. LOETTE [Suspect]
     Active Substance: ETHINYL ESTRADIOL\LEVONORGESTREL
     Indication: CONTRACEPTION
     Dosage: 1 DF, DAILY
     Route: 048
     Dates: start: 20110101, end: 20140717

REACTIONS (2)
  - Endometrial atrophy [Recovering/Resolving]
  - Metrorrhagia [Recovering/Resolving]

NARRATIVE: CASE EVENT DATE: 20140717
